FAERS Safety Report 15374058 (Version 1)
Quarter: 2018Q3

REPORT INFORMATION
  Report Type: Report from Study
  Country: US (occurrence: US)
  Receive Date: 20180912
  Receipt Date: 20180912
  Transmission Date: 20181010
  Serious: Yes (Other)
  Sender: FDA-Public Use
  Company Number: US-ASTELLAS-2017US042603

PATIENT
  Sex: Male

DRUGS (1)
  1. ENZALUTAMIDE [Suspect]
     Active Substance: ENZALUTAMIDE
     Indication: PROSTATE CANCER
     Route: 048
     Dates: start: 20170926

REACTIONS (6)
  - Loss of consciousness [Unknown]
  - Fatigue [Not Recovered/Not Resolved]
  - Cognitive disorder [Unknown]
  - Prostatic specific antigen increased [Unknown]
  - Disturbance in attention [Unknown]
  - Hot flush [Not Recovered/Not Resolved]
